FAERS Safety Report 9315038 (Version 2)
Quarter: 2013Q4

REPORT INFORMATION
  Report Type: Spontaneous
  Country: UA (occurrence: None)
  Receive Date: 20130524
  Receipt Date: 20131203
  Transmission Date: 20140711
  Serious: Yes (Hospitalization)
  Sender: FDA-Public Use
  Company Number: AUR-APL-2013-04083

PATIENT
  Age: 78 Year
  Sex: Male

DRUGS (7)
  1. METFORMIN (METFORMIN) [Suspect]
     Indication: PRODUCT USED FOR UNKNOWN INDICATION
     Dosage: 1000 MG.
  2. PARACETAMOL (PARACETAMOL) [Suspect]
     Indication: PRODUCT USED FOR UNKNOWN INDICATION
     Dosage: STOPPED
  3. NOVORAPID [Suspect]
     Indication: TYPE 2 DIABETES MELLITUS
  4. ISOPHANE INSULIN [Suspect]
     Indication: TYPE 2 DIABETES MELLITUS
  5. BUMETANIDE (BUMETANIDE) [Concomitant]
  6. SAXAGLIPTIN (SAXAGLIPTIN) [Concomitant]
  7. SERTRALINE (SERTRALINE) (SERTRALINE) [Concomitant]

REACTIONS (3)
  - Gastrooesophageal reflux disease [None]
  - Dyspnoea [None]
  - Vomiting [None]
